FAERS Safety Report 19257815 (Version 5)
Quarter: 2021Q3

REPORT INFORMATION
  Report Type: Spontaneous
  Country: CA (occurrence: CA)
  Receive Date: 20210514
  Receipt Date: 20210812
  Transmission Date: 20211014
  Serious: Yes (Other)
  Sender: FDA-Public Use
  Company Number: CA-CELLTRION INC.-2021CA006559

PATIENT

DRUGS (20)
  1. INFLECTRA [Suspect]
     Active Substance: INFLIXIMAB-DYYB
     Dosage: 5 MG/KG EVERY 4 WEEKS
     Route: 042
     Dates: start: 20160712, end: 20170206
  2. INFLECTRA [Suspect]
     Active Substance: INFLIXIMAB-DYYB
     Dosage: 8 MG/KG, EVERY 4 WEEKS
     Route: 042
     Dates: start: 20180220, end: 20190212
  3. ESTRACE [Concomitant]
     Active Substance: ESTRADIOL
     Dosage: 1 MG, DAILY
  4. INFLECTRA [Suspect]
     Active Substance: INFLIXIMAB-DYYB
     Dosage: 7 MG/KG EVERY 4 WEEKS
     Route: 042
     Dates: start: 20170307, end: 20180122
  5. INFLECTRA [Suspect]
     Active Substance: INFLIXIMAB-DYYB
     Dosage: 618 MG EVERY 4 WEEKS
     Route: 042
     Dates: start: 20190212, end: 20190827
  6. TECTA [Concomitant]
     Active Substance: PANTOPRAZOLE MAGNESIUM
     Dosage: 40 MG, 2X/DAY
  7. INFLECTRA [Suspect]
     Active Substance: INFLIXIMAB-DYYB
     Indication: PSORIATIC ARTHROPATHY
     Dosage: 3 MG/KG EVERY 4 WEEKS
     Route: 042
     Dates: start: 20160107, end: 20160607
  8. INFLECTRA [Suspect]
     Active Substance: INFLIXIMAB-DYYB
     Dosage: 8 MG/KG, EVERY 4 WEEKS
     Dates: start: 20210727
  9. CYMBALTA [Concomitant]
     Active Substance: DULOXETINE HYDROCHLORIDE
     Dosage: 60 MG. 2 A DAY
  10. INFLECTRA [Suspect]
     Active Substance: INFLIXIMAB-DYYB
     Dosage: 8 MG/KG, EVERY 4 WEEKS (583 MG)
     Route: 042
     Dates: start: 20190417
  11. INFLECTRA [Suspect]
     Active Substance: INFLIXIMAB-DYYB
     Dosage: 8 MG/KG EVERY 4 WEEKS
     Route: 042
     Dates: start: 20210407
  12. INFLECTRA [Suspect]
     Active Substance: INFLIXIMAB-DYYB
     Dosage: 8 MG/KG, EVERY 4 WEEKS
     Dates: start: 20210614
  13. BISOPROLOL [Concomitant]
     Active Substance: BISOPROLOL
     Indication: TACHYCARDIA
     Dosage: 1 DF,DOSAGE INFO UNKNOWN
  14. FENTANYL. [Concomitant]
     Active Substance: FENTANYL
     Dosage: 75 UG.CHANGE EVERY 3 DAYS
  15. INFLECTRA [Suspect]
     Active Substance: INFLIXIMAB-DYYB
     Dosage: 664 MG, ONE TIME ADMINISTERED WITH WEIGHT 74 KG AT 8.97MG/KG
     Route: 042
     Dates: start: 20190320, end: 20190320
  16. INFLECTRA [Suspect]
     Active Substance: INFLIXIMAB-DYYB
     Dosage: 8 MG/KG, EVERY 4 WEEKS
     Route: 042
     Dates: start: 20210520, end: 20210520
  17. INFLECTRA [Suspect]
     Active Substance: INFLIXIMAB-DYYB
     Dosage: 8 MG/KG EVERY 4 WEEKS
     Route: 042
     Dates: start: 20190930
  18. INFLECTRA [Suspect]
     Active Substance: INFLIXIMAB-DYYB
     Dosage: 8 MG PER KG OR 664 MG EVERY 4 WEEKS
     Route: 042
     Dates: start: 20180220, end: 20190107
  19. METFORMIN 1A PHARMA [Concomitant]
     Active Substance: METFORMIN HYDROCHLORIDE
     Dosage: 500 MG, 2X/DAY
  20. PREDNISONE. [Concomitant]
     Active Substance: PREDNISONE
     Dosage: 20 MG, DAILY

REACTIONS (5)
  - Myalgia [Unknown]
  - Inappropriate schedule of product administration [Unknown]
  - Oral infection [Not Recovered/Not Resolved]
  - Off label use [Unknown]
  - Fibrosis [Unknown]

NARRATIVE: CASE EVENT DATE: 20160107
